FAERS Safety Report 13454180 (Version 1)
Quarter: 2017Q2

REPORT INFORMATION
  Report Type: Spontaneous
  Country: US (occurrence: US)
  Receive Date: 20170418
  Receipt Date: 20170418
  Transmission Date: 20170830
  Serious: No
  Sender: FDA-Public Use
  Company Number: US-ALLERGAN-1670767US

PATIENT
  Age: 58 Year
  Sex: Female

DRUGS (3)
  1. ARTIFICIAL TEARS [Concomitant]
     Active Substance: GLYCERIN\HYPROMELLOSES\POLYETHYLENE GLYCOL 400
     Indication: DRY EYE
     Dosage: UNK, THREE TIMES DAILY
     Route: 047
  2. LUMIGAN [Suspect]
     Active Substance: BIMATOPROST
     Indication: INTRAOCULAR PRESSURE TEST
     Dosage: 2 GTT (1 DROP IN EACH EYE), BID
     Route: 047
  3. ALPHAGAN P [Suspect]
     Active Substance: BRIMONIDINE TARTRATE
     Indication: INTRAOCULAR PRESSURE TEST
     Dosage: UNK, DAILY
     Route: 047

REACTIONS (3)
  - Headache [Recovered/Resolved]
  - Intraocular pressure increased [Not Recovered/Not Resolved]
  - Photopsia [Recovered/Resolved]
